FAERS Safety Report 9197892 (Version 2)
Quarter: 2013Q2

REPORT INFORMATION
  Report Type: Report from Study
  Country: PL (occurrence: PL)
  Receive Date: 20130328
  Receipt Date: 20130402
  Transmission Date: 20140414
  Serious: Yes (Death, Other)
  Sender: FDA-Public Use
  Company Number: PL-BRISTOL-MYERS SQUIBB COMPANY-16789430

PATIENT
  Age: 59 Year
  Sex: Male

DRUGS (6)
  1. BLINDED: IPILIMUMAB [Suspect]
     Indication: NON-SMALL CELL LUNG CANCER
     Route: 042
     Dates: start: 20120612, end: 20120612
  2. CARBOPLATIN [Suspect]
     Indication: NON-SMALL CELL LUNG CANCER
     Route: 042
  3. PACLITAXEL [Suspect]
     Indication: NON-SMALL CELL LUNG CANCER
     Route: 042
  4. BLINDED: PLACEBO [Suspect]
     Indication: NON-SMALL CELL LUNG CANCER
     Route: 042
     Dates: start: 20120612, end: 20120612
  5. CYCLONAMINA [Concomitant]
  6. EXACYL [Concomitant]

REACTIONS (4)
  - Intestinal perforation [Fatal]
  - Cardiopulmonary failure [Fatal]
  - Colitis [Fatal]
  - Diarrhoea [Not Recovered/Not Resolved]
